FAERS Safety Report 7152452-4 (Version None)
Quarter: 2010Q4

REPORT INFORMATION
  Report Type: 
  Country: None (occurrence: None)
  Receive Date: 20101213
  Receipt Date: 20101207
  Transmission Date: 20110411
  Serious: Yes (Other)
  Sender: FDA-Public Use
  Company Number: JP-PFIZER INC-2010158111

PATIENT
  Sex: Male

DRUGS (2)
  1. ZITHROMAC [Suspect]
     Dosage: UNK
     Route: 048
     Dates: start: 20101105
  2. ZITHROMAC [Suspect]
     Dosage: UNK
     Route: 048
     Dates: start: 20101120, end: 20101122

REACTIONS (1)
  - HAEMATURIA [None]
